FAERS Safety Report 15117544 (Version 2)
Quarter: 2018Q3

REPORT INFORMATION
  Report Type: Report from Study
  Country: US (occurrence: US)
  Receive Date: 20180706
  Receipt Date: 20180711
  Transmission Date: 20181010
  Serious: Yes (Hospitalization)
  Sender: FDA-Public Use
  Company Number: US-009507513-1710USA002595

PATIENT
  Age: 75 Year
  Sex: Male
  Weight: 87.2 kg

DRUGS (13)
  1. CLOPIDOGREL [Concomitant]
     Active Substance: CLOPIDOGREL BISULFATE
     Indication: CORONARY ARTERY DISEASE
     Dosage: TOTAL DAILY DOSE: 75 MG
     Dates: start: 201201, end: 20171022
  2. TAMSULOSIN HYDROCHLORIDE. [Concomitant]
     Active Substance: TAMSULOSIN HYDROCHLORIDE
     Indication: PROSTATOMEGALY
     Dosage: TOTAL DAILY DOSE: 0.8 MG
     Dates: start: 20170509, end: 20171109
  3. FINASTERIDE. [Concomitant]
     Active Substance: FINASTERIDE
     Indication: PROSTATOMEGALY
     Dosage: TOTALY DAILY DOSE: 5 MG
     Dates: start: 20170509
  4. NOVOLOG [Concomitant]
     Active Substance: INSULIN ASPART
     Indication: DIABETES MELLITUS
     Dosage: TOTALY DAILY DOSE: 48 U
     Dates: start: 201001, end: 20171022
  5. XARELTO [Concomitant]
     Active Substance: RIVAROXABAN
     Indication: CORONARY ARTERY DISEASE
     Dosage: TOTAL DAILY DOSE: 20 MG, QD
     Dates: start: 201301
  6. MIRALAX [Concomitant]
     Active Substance: POLYETHYLENE GLYCOL 3350
     Indication: CONSTIPATION
     Dosage: TOTAL DAILY DOSE: 17 G
     Dates: start: 201501
  7. LANTUS [Concomitant]
     Active Substance: INSULIN GLARGINE
     Indication: DIABETES MELLITUS
     Dosage: TOTAL DAILY DOSE: 30 U
     Dates: start: 201001, end: 20170905
  8. ERTUGLIFLOZIN [Suspect]
     Active Substance: ERTUGLIFLOZIN
     Indication: TYPE 2 DIABETES MELLITUS
     Dosage: UNK
     Route: 048
     Dates: start: 20170324, end: 20180327
  9. ADVIL PM [Concomitant]
     Active Substance: DIPHENHYDRAMINE CITRATE\IBUPROFEN
     Indication: SLEEP DISORDER THERAPY
     Dosage: TOTAL DAILY DOSE: 2 CAPSULES
     Route: 048
     Dates: start: 201501
  10. TRESIBA [Concomitant]
     Active Substance: INSULIN DEGLUDEC
     Indication: DIABETES MELLITUS
     Dosage: 30 U, EVERY DAY
     Route: 003
     Dates: start: 20170906, end: 20171022
  11. ASPIRIN. [Concomitant]
     Active Substance: ASPIRIN
     Indication: CARDIOVASCULAR EVENT PROPHYLAXIS
     Dosage: TOTALY DAILY DOSE: 81 MG
     Dates: start: 200401
  12. CARVEDILOL. [Concomitant]
     Active Substance: CARVEDILOL
     Indication: HYPERTENSION
     Dosage: TOTAL DAILY DOSE: 6.25 MG
     Dates: start: 201701, end: 20171021
  13. ATORVASTATIN [Concomitant]
     Active Substance: ATORVASTATIN
     Indication: HYPERLIPIDAEMIA
     Dosage: TOTAL DAILY DOSE: 10 MG
     Dates: start: 201201

REACTIONS (3)
  - Cellulitis [Recovering/Resolving]
  - Diabetic ketoacidosis [Recovered/Resolved]
  - Hip fracture [Recovered/Resolved]

NARRATIVE: CASE EVENT DATE: 20170908
